FAERS Safety Report 4893124-6 (Version None)
Quarter: 2005Q4

REPORT INFORMATION
  Report Type: 
  Country: None (occurrence: None)
  Receive Date: 20051223
  Receipt Date: 20050207
  Transmission Date: 20060501
  Serious: Yes (Other)
  Sender: FDA-Public Use
  Company Number: PHEH2005US00714

PATIENT
  Age: 29 Year
  Sex: Female

DRUGS (4)
  1. CLOZARIL [Suspect]
     Indication: SCHIZOPHRENIA
     Dosage: 300 MG, QD, ORAL; 250 MG, QD, ORAL
     Route: 048
     Dates: end: 20041231
  2. CLOZARIL [Suspect]
     Indication: SCHIZOPHRENIA
     Dosage: 300 MG, QD, ORAL; 250 MG, QD, ORAL
     Route: 048
     Dates: start: 20050101
  3. ABILIFY [Concomitant]
  4. VITAMINS (NO INGREDIENTS/SUBSTANCES) [Concomitant]

REACTIONS (7)
  - BLOOD GLUCOSE INCREASED [None]
  - BREAST FIBROMA [None]
  - CONTUSION [None]
  - DRUG WITHDRAWAL SYNDROME [None]
  - DYSTONIA [None]
  - HEART RATE INCREASED [None]
  - VEIN DISORDER [None]
